FAERS Safety Report 5467511-1 (Version None)
Quarter: 2007Q3

REPORT INFORMATION
  Report Type: 
  Country: None (occurrence: None)
  Receive Date: 20070925
  Receipt Date: 20070924
  Transmission Date: 20080115
  Serious: Yes (Hospitalization)
  Sender: FDA-Public Use
  Company Number: FR-BOEHRINGER INGELHEIM PHARMACEUTICALS, INC.-2007-DE-00128BY

PATIENT
  Age: 77 Year
  Sex: Male

DRUGS (1)
  1. PRITOR [Suspect]
     Indication: HYPERTENSION
     Route: 048
     Dates: end: 20060828

REACTIONS (5)
  - ASTHENIA [None]
  - BACK PAIN [None]
  - DECREASED APPETITE [None]
  - FALL [None]
  - HYPOTENSION [None]
